FAERS Safety Report 17942092 (Version 1)
Quarter: 2020Q2

REPORT INFORMATION
  Report Type: Spontaneous
  Country: US (occurrence: US)
  Receive Date: 20200624
  Receipt Date: 20200624
  Transmission Date: 20200714
  Serious: Yes (Hospitalization)
  Sender: FDA-Public Use
  Company Number: None

PATIENT
  Age: 71 Year
  Sex: Male

DRUGS (16)
  1. AMLODIPINE [Concomitant]
     Active Substance: AMLODIPINE BESYLATE
  2. HCTZ [Concomitant]
     Active Substance: HYDROCHLOROTHIAZIDE
  3. EZETIMIBE. [Concomitant]
     Active Substance: EZETIMIBE
  4. PHOSPHORUS [Concomitant]
     Active Substance: PHOSPHORUS
  5. PREDNISONE. [Concomitant]
     Active Substance: PREDNISONE
  6. SPIRONOLACTONE. [Concomitant]
     Active Substance: SPIRONOLACTONE
  7. WAL-ZAN [Concomitant]
     Active Substance: RANITIDINE HYDROCHLORIDE
  8. FENTANYL. [Concomitant]
     Active Substance: FENTANYL
  9. FUROSEMIDE. [Concomitant]
     Active Substance: FUROSEMIDE
  10. LABETALOL [Concomitant]
     Active Substance: LABETALOL\LABETALOL HYDROCHLORIDE
  11. PANTOPRAZOLE [Concomitant]
     Active Substance: PANTOPRAZOLE
  12. POTASSIUM CHLROIDE [Concomitant]
  13. ZYTIGA [Suspect]
     Active Substance: ABIRATERONE ACETATE
     Indication: PROSTATE CANCER
     Route: 048
     Dates: start: 20191114
  14. MORPHINE [Concomitant]
     Active Substance: MORPHINE
  15. PRAVASTATIN. [Concomitant]
     Active Substance: PRAVASTATIN
  16. GABAPENTIN. [Concomitant]
     Active Substance: GABAPENTIN

REACTIONS (1)
  - Pneumonia [None]

NARRATIVE: CASE EVENT DATE: 202005
